FAERS Safety Report 19938049 (Version 1)
Quarter: 2021Q4

REPORT INFORMATION
  Report Type: Spontaneous
  Country: US (occurrence: US)
  Receive Date: 20211011
  Receipt Date: 20211011
  Transmission Date: 20220303
  Serious: No
  Sender: FDA-Public Use
  Company Number: US-ROCHE-2796649

PATIENT
  Age: 70 Year
  Sex: Male

DRUGS (3)
  1. ZELBORAF [Suspect]
     Active Substance: VEMURAFENIB
     Indication: Malignant melanoma
     Dosage: ONGOING: YES
     Route: 048
     Dates: start: 202102
  2. ZELBORAF [Suspect]
     Active Substance: VEMURAFENIB
     Dosage: 3 TABLETS
     Route: 048
  3. COTELLIC [Suspect]
     Active Substance: COBIMETINIB
     Indication: Malignant melanoma
     Dosage: 3 TABLETS
     Route: 048
     Dates: start: 202103

REACTIONS (3)
  - Product container issue [Unknown]
  - Product dose omission issue [Unknown]
  - No adverse event [Unknown]

NARRATIVE: CASE EVENT DATE: 20210318
